FAERS Safety Report 17869093 (Version 1)
Quarter: 2020Q2

REPORT INFORMATION
  Report Type: Report from Study
  Country: US (occurrence: US)
  Receive Date: 20200608
  Receipt Date: 20200608
  Transmission Date: 20200714
  Serious: Yes (Other)
  Sender: FDA-Public Use
  Company Number: US-ROCHE-2610522

PATIENT
  Sex: Male
  Weight: 101.24 kg

DRUGS (2)
  1. OCREVUS [Suspect]
     Active Substance: OCRELIZUMAB
     Indication: PROGRESSIVE MULTIPLE SCLEROSIS
     Dosage: INFUSION IS 5 HOURS LONG
     Route: 065
     Dates: start: 20190501
  2. PROVIGIL [Concomitant]
     Active Substance: MODAFINIL

REACTIONS (3)
  - Exostosis [Not Recovered/Not Resolved]
  - Urinary tract infection [Unknown]
  - Off label use [Unknown]
